FAERS Safety Report 4740751-2 (Version None)
Quarter: 2005Q3

REPORT INFORMATION
  Report Type: 
  Country: None (occurrence: None)
  Receive Date: 20050802
  Receipt Date: 20050209
  Transmission Date: 20060218
  Serious: Yes (Death)
  Sender: FDA-Public Use
  Company Number: 212340

PATIENT
  Age: 57 Year
  Sex: Male

DRUGS (6)
  1. TNKASE [Suspect]
     Indication: MYOCARDIAL INFARCTION
     Dosage: 45 MG, SINGLE, INTRAVENOUS
     Route: 042
     Dates: start: 20050124, end: 20050124
  2. NITROGLYCERIN DRIP (NITROGLYCERIN) [Concomitant]
  3. INTEGRILIN [Concomitant]
  4. PLAVIX [Concomitant]
  5. METOPROLOL TARTRATE [Concomitant]
  6. HEPARIN [Concomitant]

REACTIONS (2)
  - CEREBRAL HAEMATOMA [None]
  - CEREBRAL HAEMORRHAGE [None]
